FAERS Safety Report 9510764 (Version 1)
Quarter: 2013Q3

REPORT INFORMATION
  Report Type: Spontaneous
  Country: CH (occurrence: CH)
  Receive Date: 20130910
  Receipt Date: 20130910
  Transmission Date: 20140515
  Serious: Yes (Hospitalization)
  Sender: FDA-Public Use
  Company Number: CH-ROCHE-1270909

PATIENT
  Age: 57 Year
  Sex: Male

DRUGS (5)
  1. MABTHERA [Suspect]
     Indication: THROMBOCYTOPENIA
     Route: 041
     Dates: start: 20130625
  2. MABTHERA [Suspect]
     Indication: OFF LABEL USE
  3. TAVEGYL [Concomitant]
     Route: 048
  4. DAFALGAN [Concomitant]
     Route: 048
  5. PREDNISON GALEPHARM [Concomitant]
     Route: 048

REACTIONS (4)
  - Renal failure acute [Recovered/Resolved]
  - Serum sickness [Recovered/Resolved]
  - Pain in jaw [Recovered/Resolved]
  - Fatigue [Recovered/Resolved]
